FAERS Safety Report 24586885 (Version 1)
Quarter: 2024Q4

REPORT INFORMATION
  Report Type: Spontaneous
  Country: GB (occurrence: GB)
  Receive Date: 20241107
  Receipt Date: 20241107
  Transmission Date: 20250115
  Serious: Yes (Other)
  Sender: TEVA
  Company Number: GB-MHRA-TPP15741422C9111963YC1730124467509

PATIENT
  Age: 72 Year
  Sex: Female
  Weight: 113 kg

DRUGS (29)
  1. MONTELUKAST [Suspect]
     Active Substance: MONTELUKAST
     Indication: Ill-defined disorder
     Dosage: ONE TO BE TAKEN DAILY, DAILY DOSE: 10MG
     Route: 065
     Dates: start: 20240620
  2. APIXABAN [Concomitant]
     Active Substance: APIXABAN
     Indication: Ill-defined disorder
     Dosage: TAKE ONE TWICE DAILY, DAILY DOSE: 2 DOSAGE FORM
     Route: 065
     Dates: start: 20211018
  3. CEFACLOR [Concomitant]
     Active Substance: CEFACLOR
     Indication: Ill-defined disorder
     Dosage: ONE TO BE TAKEN TWICE A DAY
     Route: 065
     Dates: start: 20211018
  4. DOXYCYCLINE [Concomitant]
     Active Substance: DOXYCYCLINE
     Indication: Ill-defined disorder
     Dosage: TWO NOW THEN ONE DAILY
     Route: 065
     Dates: start: 20240827, end: 20240903
  5. FOLIC ACID [Concomitant]
     Active Substance: FOLIC ACID
     Indication: Ill-defined disorder
     Dosage: TAKE ONE DAILY
     Route: 065
     Dates: start: 20240202
  6. BD VIVA [Concomitant]
     Indication: Ill-defined disorder
     Dosage: USE AS DIRECTED
     Dates: start: 20230810
  7. EASYHALER [Concomitant]
     Indication: Ill-defined disorder
     Dosage: TIME INTERVAL: AS NECESSARY: INHALE 1 DOSE AS NEEDED
     Route: 055
     Dates: start: 20211018
  8. FUROSEMIDE [Concomitant]
     Active Substance: FUROSEMIDE
     Indication: Ill-defined disorder
     Dosage: TAKE ONE IN THE MORNING, DAILY DOSE: 1 DOSAGE FORM
     Route: 065
     Dates: start: 20211018
  9. CYCLIZINE [Concomitant]
     Active Substance: CYCLIZINE
     Indication: Ill-defined disorder
     Dosage: TIME INTERVAL: 0.33333333 DAYS: TAKE ONE TABLET UP TO MAXIMUM OF THREE TIMES DAILY
     Route: 065
     Dates: start: 20231005
  10. INCRUSE ELLIPTA [Concomitant]
     Active Substance: UMECLIDINIUM BROMIDE
     Indication: Ill-defined disorder
     Dosage: INHALE 1 DOSE DAILY, DAILY DOSE: 1 DOSAGE FORM
     Route: 055
     Dates: start: 20240620
  11. MORPHINE SULFATE [Concomitant]
     Active Substance: MORPHINE SULFATE
     Indication: Ill-defined disorder
     Dosage: TAKE 2.5ML TO 5ML EVERY 4 HOURS ONLY WHEN REQUI...
     Route: 065
     Dates: start: 20240319
  12. FREESTYLE LIBRE 2 [Concomitant]
     Indication: Ill-defined disorder
     Dosage: APPLY ONE SENSOR EVERY 14DAYS
     Dates: start: 20230426
  13. MOMETASONE [Concomitant]
     Active Substance: MOMETASONE
     Indication: Ill-defined disorder
     Dosage: SPRAY TWICE INTO EACH NOSTRIL ONCE A DAY
     Dates: start: 20240923, end: 20241028
  14. COCODAMOL [Concomitant]
     Active Substance: ACETAMINOPHEN\CODEINE PHOSPHATE
     Indication: Ill-defined disorder
     Dosage: TAKE ONE OR TWO CAPSULES UP TO FOUR TIMES DAILY...
     Route: 065
     Dates: start: 20230525
  15. NITROGLYCERIN [Concomitant]
     Active Substance: NITROGLYCERIN
     Indication: Ill-defined disorder
     Dosage: SPRAY ONE OR TWO PUFFS UNDER THE TONGUE WHEN RE...
     Route: 065
     Dates: start: 20211018
  16. CLINDAMYCIN [Concomitant]
     Active Substance: CLINDAMYCIN
     Indication: Ill-defined disorder
     Dosage: TAKE TWO FOUR TIMES A DAY
     Route: 065
     Dates: start: 20240808, end: 20240815
  17. MICROLET [Concomitant]
     Indication: Ill-defined disorder
     Dosage: AS DIRECTED
     Route: 065
     Dates: start: 20211018
  18. EZETIMIBE [Concomitant]
     Active Substance: EZETIMIBE
     Indication: Ill-defined disorder
     Dosage: TAKE ONE DAILY
     Route: 065
     Dates: start: 20211018
  19. BUDESONIDE\FORMOTEROL [Concomitant]
     Active Substance: BUDESONIDE\FORMOTEROL
     Indication: Ill-defined disorder
     Dosage: INHALE TWO PUFFS TWICE A DAY AND UP TO 8 PUFFS ...
     Route: 050
     Dates: start: 20220624
  20. ALLOPURINOL [Concomitant]
     Active Substance: ALLOPURINOL
     Indication: Ill-defined disorder
     Dosage: TAKE TWO DAILY
     Route: 065
     Dates: start: 20240220
  21. CONTOUR NEXT [Concomitant]
     Indication: Ill-defined disorder
     Dosage: USE TO TEST AS ADVISED
     Route: 065
     Dates: start: 20211018
  22. SHARPSAFE [Concomitant]
     Indication: Ill-defined disorder
     Dosage: FOR SAFE DISPOSAL OF USED SHARPS/SENSORS
     Dates: start: 20230426
  23. HUMULIN L [Concomitant]
     Active Substance: INSULIN HUMAN
     Indication: Ill-defined disorder
     Dosage: USE AS DIRECTED
     Route: 065
     Dates: start: 20211018
  24. BISOPROLOL [Concomitant]
     Active Substance: BISOPROLOL\BISOPROLOL FUMARATE
     Indication: Ill-defined disorder
     Dosage: TAKE ONE DAILY FOR HEART RATE CONTROL - TARGET ...
     Route: 065
     Dates: start: 20231128
  25. MINERAL OIL\PARAFFIN [Concomitant]
     Active Substance: MINERAL OIL\PARAFFIN
     Indication: Ill-defined disorder
     Dosage: (CONSIDER OTC IF APPLICABLE) APPLY TO AFFECTED ...
     Route: 065
     Dates: start: 20241015
  26. NICORANDIL [Concomitant]
     Active Substance: NICORANDIL
     Indication: Ill-defined disorder
     Dosage: TAKE ONE TABLET TWICE DAILY (TOTAL DOSE 30MG BD), DAILY DOSE: 60MG
     Route: 065
     Dates: start: 20211018
  27. PANTOPRAZOLE [Concomitant]
     Active Substance: PANTOPRAZOLE
     Indication: Ill-defined disorder
     Dosage: TAKE ONE TABLET TWICE A DAY
     Route: 065
     Dates: start: 20211018
  28. DOCUSATE SODIUM [Concomitant]
     Active Substance: DOCUSATE SODIUM
     Indication: Ill-defined disorder
     Dosage: TAKE TWO CAPSULES TWICE DAILY
     Route: 065
     Dates: start: 20220525
  29. HYDROXOCOBALAMIN [Concomitant]
     Active Substance: HYDROXOCOBALAMIN
     Indication: Ill-defined disorder
     Dosage: ONE 1MG/1ML INJECTON TO BE GIVEN INTRAMUSCULAR ...
     Route: 030
     Dates: start: 20211020

REACTIONS (1)
  - Depressed mood [Recovered/Resolved]
